FAERS Safety Report 17090780 (Version 2)
Quarter: 2022Q1

REPORT INFORMATION
  Report Type: Spontaneous
  Country: MY (occurrence: MY)
  Receive Date: 20191129
  Receipt Date: 20220119
  Transmission Date: 20220424
  Serious: Yes (Other)
  Sender: FDA-Public Use
  Company Number: MY-SUN PHARMACEUTICAL INDUSTRIES LTD-2019R1-228646

PATIENT
  Age: 21 Year
  Sex: Female

DRUGS (5)
  1. CARBOPLATIN [Suspect]
     Active Substance: CARBOPLATIN
     Indication: Gestational trophoblastic tumour
     Dosage: UNK
     Route: 065
     Dates: start: 20130715, end: 20130924
  2. PACLITAXEL [Suspect]
     Active Substance: PACLITAXEL
     Indication: Gestational trophoblastic tumour
     Dosage: UNK
     Route: 065
     Dates: start: 20130715, end: 20130924
  3. CISPLATIN [Suspect]
     Active Substance: CISPLATIN
     Indication: Gestational trophoblastic tumour
     Dosage: UNK
     Route: 065
     Dates: start: 20130529, end: 20130624
  4. VINBLASTINE [Suspect]
     Active Substance: VINBLASTINE
     Indication: Gestational trophoblastic tumour
     Dosage: UNK
     Route: 065
     Dates: start: 20130529, end: 20130624
  5. BLEOMYCIN [Suspect]
     Active Substance: BLEOMYCIN SULFATE
     Indication: Gestational trophoblastic tumour
     Dosage: UNK
     Route: 065
     Dates: start: 20130529, end: 20130624

REACTIONS (2)
  - Drug resistance [Unknown]
  - Exposure during pregnancy [Unknown]
